FAERS Safety Report 21952036 (Version 2)
Quarter: 2024Q1

REPORT INFORMATION
  Report Type: Spontaneous
  Country: NL (occurrence: NL)
  Receive Date: 20230203
  Receipt Date: 20240122
  Transmission Date: 20240410
  Serious: Yes (Other)
  Sender: FDA-Public Use
  Company Number: None

PATIENT
  Age: 45 Year
  Sex: Female
  Weight: 49.3 kg

DRUGS (12)
  1. ANIDULAFUNGIN [Suspect]
     Active Substance: ANIDULAFUNGIN
     Indication: Systemic candida
     Dosage: 200 MG, SINGLE
     Dates: start: 20130912, end: 20130912
  2. ANIDULAFUNGIN [Suspect]
     Active Substance: ANIDULAFUNGIN
     Dosage: AFTERWARDS, 100 MG, 1X/DAY
     Route: 042
     Dates: start: 20130913
  3. OXYCODONE HYDROCHLORIDE [Concomitant]
     Active Substance: OXYCODONE HYDROCHLORIDE
     Dosage: CAPSULE, 5 MG (MILLIGRAM)
  4. PANTOPRAZOLE [Concomitant]
     Active Substance: PANTOPRAZOLE
     Dosage: GASTRO-RESISTANT TABLET, 40 MG (MILLIGRAM)
  5. TACROLIMUS [Concomitant]
     Active Substance: TACROLIMUS
     Dosage: CAPSULE, 1 MG (MILLIGRAM)
  6. OXAZEPAM [Concomitant]
     Active Substance: OXAZEPAM
     Dosage: TABLET, 10 MG (MILLIGRAM)
  7. PREDNISOLONE [Concomitant]
     Active Substance: PREDNISOLONE
     Dosage: CAPSULE, 10 MG (MILLIGRAM)
  8. FENTANYL [Concomitant]
     Active Substance: FENTANYL\FENTANYL CITRATE
     Dosage: BAND AID, 25 ?G (MICROGRAM) PER HOUR
  9. ACETAMINOPHEN [Concomitant]
     Active Substance: ACETAMINOPHEN
     Dosage: CAPSULE, 500 MG (MILLIGRAM)
  10. TEMAZEPAM [Concomitant]
     Active Substance: TEMAZEPAM
     Dosage: TABLET, 10 MG (MILLIGRAM)
  11. NOVORAPID [Concomitant]
     Active Substance: INSULIN ASPART
     Dosage: INJECTION FLUID, 100 U/ML (UNITS PER MILLILITER)
  12. INSULIN DETEMIR [Concomitant]
     Active Substance: INSULIN DETEMIR
     Dosage: SOLUTION FOR INJECTION, 100 U/ML (UNITS PER MILLILITER)

REACTIONS (2)
  - Hypothermia [Unknown]
  - Blood glucose decreased [Unknown]

NARRATIVE: CASE EVENT DATE: 20230915
